FAERS Safety Report 20172959 (Version 1)
Quarter: 2021Q4

REPORT INFORMATION
  Report Type: Spontaneous
  Country: FR (occurrence: FR)
  Receive Date: 20211211
  Receipt Date: 20211211
  Transmission Date: 20220303
  Serious: Yes (Hospitalization)
  Sender: FDA-Public Use
  Company Number: FR-Atnahs Limited-ATNAHS20211232647

PATIENT
  Age: 59 Year
  Sex: Female
  Weight: 73 kg

DRUGS (10)
  1. DIAZEPAM [Suspect]
     Active Substance: DIAZEPAM
     Indication: Product used for unknown indication
     Route: 048
     Dates: end: 20211016
  2. ATIVAN [Suspect]
     Active Substance: LORAZEPAM
     Indication: Catatonia
     Route: 030
     Dates: start: 20211017, end: 20211018
  3. LORMETAZEPAM [Suspect]
     Active Substance: LORMETAZEPAM
     Indication: Product used for unknown indication
     Route: 048
     Dates: end: 20211016
  4. VALPROATE SODIUM [Suspect]
     Active Substance: VALPROATE SODIUM
     Indication: Product used for unknown indication
     Route: 048
  5. TRIMEPRAZINE [Concomitant]
     Active Substance: TRIMEPRAZINE
     Indication: Product used for unknown indication
     Route: 048
     Dates: end: 20211016
  6. ANETHOLTRITHION [Concomitant]
     Active Substance: ANETHOLTRITHION
     Indication: Product used for unknown indication
     Route: 048
  7. QUETIAPINE [Concomitant]
     Active Substance: QUETIAPINE
     Indication: Product used for unknown indication
     Route: 048
     Dates: end: 20211016
  8. LOXAPINE [Concomitant]
     Active Substance: LOXAPINE
     Indication: Product used for unknown indication
     Route: 048
     Dates: end: 20211016
  9. TERALITHE [Concomitant]
     Active Substance: LITHIUM CARBONATE
     Indication: Product used for unknown indication
     Route: 048
     Dates: start: 202108, end: 20211016
  10. AMLODIPINE [Concomitant]
     Active Substance: AMLODIPINE BESYLATE
     Indication: Product used for unknown indication
     Route: 048

REACTIONS (1)
  - Altered state of consciousness [Recovered/Resolved]

NARRATIVE: CASE EVENT DATE: 20211018
